FAERS Safety Report 9513390 (Version 1)
Quarter: 2013Q3

REPORT INFORMATION
  Report Type: Spontaneous
  Country: US (occurrence: US)
  Receive Date: 20130910
  Receipt Date: 20130910
  Transmission Date: 20140515
  Serious: No
  Sender: FDA-Public Use
  Company Number: 2012P1006930

PATIENT
  Age: 70 Year
  Sex: Male
  Weight: 78.47 kg

DRUGS (8)
  1. WARFARIN SODIUM TABLETS USP 1MG [Suspect]
  2. WARFARIN SODIUM TABLETS USP 1MG [Suspect]
  3. WARFARIN SODIUM TABLETS USP 5 MG [Suspect]
  4. WARFARIN SODIUM TABLETS USP 5 MG [Suspect]
  5. ASPIRIN [Concomitant]
  6. PRAVACHOL [Concomitant]
  7. RYTHMOL [Concomitant]
  8. VITAMIN D [Concomitant]

REACTIONS (3)
  - International normalised ratio decreased [Not Recovered/Not Resolved]
  - Food interaction [Not Recovered/Not Resolved]
  - International normalised ratio fluctuation [Not Recovered/Not Resolved]
